FAERS Safety Report 7425831-5 (Version None)
Quarter: 2011Q2

REPORT INFORMATION
  Report Type: 
  Country: None (occurrence: None)
  Receive Date: 20110420
  Receipt Date: 20110415
  Transmission Date: 20111010
  Serious: Yes (Death, Life-Threatening, Hospitalization)
  Sender: FDA-Public Use
  Company Number: IT-ASTRAZENECA-2009SE03257

PATIENT
  Age: 29406 Day
  Sex: Female
  Weight: 59 kg

DRUGS (18)
  1. ZD6474 [Suspect]
     Indication: NON-SMALL CELL LUNG CANCER
     Route: 048
     Dates: start: 20090406, end: 20090620
  2. GEMCITABINE [Suspect]
     Route: 042
     Dates: start: 20090505, end: 20090505
  3. DIFLUCAN [Concomitant]
     Indication: URINARY TRACT INFECTION
     Route: 042
  4. GEMCITABINE [Suspect]
     Route: 042
     Dates: start: 20090428, end: 20090428
  5. GEMCITABINE [Suspect]
     Route: 042
     Dates: start: 20090526, end: 20090526
  6. GEMCITABINE [Suspect]
     Route: 042
     Dates: start: 20090616, end: 20090616
  7. GEMCITABINE [Suspect]
     Indication: NON-SMALL CELL LUNG CANCER
     Route: 042
     Dates: start: 20090406, end: 20090406
  8. GEMCITABINE [Suspect]
     Route: 042
     Dates: start: 20090521, end: 20090521
  9. GEMCITABINE [Suspect]
     Route: 042
     Dates: start: 20090609, end: 20090609
  10. DELTACORTENE FORTE [Concomitant]
     Indication: DYSPNOEA EXERTIONAL
     Dates: start: 20090401
  11. CEFAZOLINA [Concomitant]
     Indication: URINARY TRACT INFECTION
     Route: 042
  12. GEMCITABINE [Suspect]
     Route: 042
     Dates: start: 20090414, end: 20090414
  13. VERTISERX [Concomitant]
     Indication: VERTIGO
     Route: 048
     Dates: start: 20020101
  14. ASPIRIN [Concomitant]
     Indication: PROPHYLAXIS
     Route: 048
  15. EUTIROX [Concomitant]
     Indication: HYPOTHYROIDISM
     Route: 048
  16. TRENTAL [Concomitant]
     Indication: VARICOSE VEIN
     Route: 048
  17. TAZOCIN [Concomitant]
     Indication: URINARY TRACT INFECTION
     Route: 042
  18. CIPROXIN [Concomitant]
     Indication: URINARY TRACT INFECTION

REACTIONS (2)
  - DEPRESSED LEVEL OF CONSCIOUSNESS [None]
  - PULMONARY EMBOLISM [None]
